FAERS Safety Report 8812620 (Version 3)
Quarter: 2012Q4

REPORT INFORMATION
  Report Type: Report from Study
  Country: None (occurrence: US)
  Receive Date: 20120927
  Receipt Date: 20121016
  Transmission Date: 20130627
  Serious: Yes (Hospitalization, Other)
  Sender: FDA-Public Use
  Company Number: US-ABBOTT-12P-163-0985493-00

PATIENT
  Age: 52 Year
  Sex: Male

DRUGS (5)
  1. ANDROGEL [Suspect]
     Indication: BLOOD TESTOSTERONE DECREASED
     Dates: start: 2003, end: 2006
  2. TESTIM [Suspect]
     Indication: PRODUCT USED FOR UNKNOWN INDICATION
     Dates: start: 2006
  3. UNKNOWN BLOOD THINNER [Concomitant]
     Indication: PRODUCT USED FOR UNKNOWN INDICATION
  4. UNKNOWN MEDICATION FOR DEMENTIA [Concomitant]
     Indication: DEMENTIA
     Dates: start: 200608
  5. UNKNOWN MEDICATION FOR ALZHEIMERS [Concomitant]
     Indication: PRODUCT USED FOR UNKNOWN INDICATION

REACTIONS (14)
  - Poor peripheral circulation [Unknown]
  - Thrombosis [Recovered/Resolved]
  - Oedema peripheral [Not Recovered/Not Resolved]
  - Pain in extremity [Recovered/Resolved]
  - Hair growth abnormal [Unknown]
  - Hypoaesthesia [Unknown]
  - Skin discolouration [Unknown]
  - Genital disorder male [Unknown]
  - Nipple disorder [Unknown]
  - Gait disturbance [Unknown]
  - Impaired driving ability [Unknown]
  - Sensation of heaviness [Unknown]
  - Procedural pain [Not Recovered/Not Resolved]
  - Post procedural haemorrhage [Not Recovered/Not Resolved]
